FAERS Safety Report 8835070 (Version 1)
Quarter: 2012Q4

REPORT INFORMATION
  Report Type: 
  Country: US (occurrence: US)
  Receive Date: 20121011
  Receipt Date: 20121011
  Transmission Date: 20130627
  Serious: Yes (Other)
  Sender: FDA-Public Use
  Company Number: US-JNJFOC-20121002528

PATIENT
  Sex: Female
  Weight: 74.39 kg

DRUGS (2)
  1. REMICADE [Suspect]
     Indication: RHEUMATOID ARTHRITIS
     Route: 042
     Dates: start: 20120425, end: 20120425
  2. EPINEPHRINE [Suspect]
     Indication: ANAESTHESIA
     Route: 065
     Dates: start: 201205

REACTIONS (3)
  - Ulcer [Recovered/Resolved]
  - Dyspnoea [Unknown]
  - Fatigue [Unknown]
